FAERS Safety Report 7921842 (Version 2)
Quarter: 2014Q4

REPORT INFORMATION
  Report Type: Report from Study
  Country: US (occurrence: US)
  Receive Date: 20110429
  Receipt Date: 20141222
  Transmission Date: 20150529
  Serious: No
  Sender: FDA-Public Use
  Company Number: US-ASTRAZENECA-2010SE51796

PATIENT
  Sex: Female

DRUGS (1)
  1. NEXIUM [Suspect]
     Active Substance: ESOMEPRAZOLE MAGNESIUM
     Route: 048

REACTIONS (6)
  - Seasonal allergy [Unknown]
  - Drug dose omission [Unknown]
  - Malaise [Unknown]
  - Infectious mononucleosis [Unknown]
  - Pain [Unknown]
  - Ear infection [Unknown]
